FAERS Safety Report 14295793 (Version 1)
Quarter: 2017Q4

REPORT INFORMATION
  Report Type: Report from Study
  Country: IT (occurrence: IT)
  Receive Date: 20171218
  Receipt Date: 20171218
  Transmission Date: 20180321
  Serious: Yes (Death, Other)
  Sender: FDA-Public Use
  Company Number: IT-ROCHE-2039464

PATIENT
  Sex: Male

DRUGS (1)
  1. ALTEPLASE. [Suspect]
     Active Substance: ALTEPLASE
     Indication: THROMBOSIS IN DEVICE
     Dosage: IV  INFUSION OF 0.75 MG/KG IN 30 MINUTES FOLLOWED BY INFUSION OF 0.50 MG/KG FOR 60 MINUTES
     Route: 042

REACTIONS (2)
  - Treatment failure [Unknown]
  - Device malfunction [Fatal]
